FAERS Safety Report 12315349 (Version 1)
Quarter: 2016Q2

REPORT INFORMATION
  Report Type: Spontaneous
  Country: US (occurrence: US)
  Receive Date: 20160428
  Receipt Date: 20160428
  Transmission Date: 20160815
  Serious: No
  Sender: FDA-Public Use
  Company Number: US-009507513-1604USA002993

PATIENT
  Age: 79 Year
  Sex: Female

DRUGS (1)
  1. ASMANEX [Suspect]
     Active Substance: MOMETASONE FUROATE
     Indication: ASTHMA
     Dosage: UNK
     Route: 045
     Dates: start: 2015

REACTIONS (4)
  - Dyspnoea [Recovering/Resolving]
  - Dizziness [Recovering/Resolving]
  - Oropharyngeal pain [Recovering/Resolving]
  - Cough [Recovering/Resolving]
